FAERS Safety Report 11701726 (Version 2)
Quarter: 2015Q4

REPORT INFORMATION
  Report Type: Spontaneous
  Country: CA (occurrence: CA)
  Receive Date: 20151105
  Receipt Date: 20151123
  Transmission Date: 20160304
  Serious: Yes (Hospitalization, Other)
  Sender: FDA-Public Use
  Company Number: CA-PFIZER INC-2015347711

PATIENT
  Age: 15 Year
  Sex: Female

DRUGS (3)
  1. ALESSE 28 [Suspect]
     Active Substance: ETHINYL ESTRADIOL\LEVONORGESTREL
     Indication: CONTRACEPTION
     Dosage: UNK, 1X/DAY
     Route: 048
     Dates: start: 201509, end: 20151015
  2. ALESSE 28 [Suspect]
     Active Substance: ETHINYL ESTRADIOL\LEVONORGESTREL
     Indication: MENSTRUAL CYCLE MANAGEMENT
  3. ALESSE 28 [Suspect]
     Active Substance: ETHINYL ESTRADIOL\LEVONORGESTREL
     Indication: ACNE

REACTIONS (10)
  - Abdominal pain [Recovered/Resolved]
  - Menorrhagia [Recovered/Resolved]
  - Mood swings [Recovered/Resolved]
  - Breast swelling [Recovered/Resolved]
  - Drug ineffective [Not Recovered/Not Resolved]
  - Lip swelling [Recovered/Resolved]
  - Abdominal distension [Recovered/Resolved]
  - Chest pain [Recovered/Resolved]
  - Asthenia [Recovered/Resolved]
  - Chest discomfort [Recovered/Resolved]

NARRATIVE: CASE EVENT DATE: 201510
